FAERS Safety Report 11560192 (Version 1)
Quarter: 2015Q3

REPORT INFORMATION
  Report Type: Spontaneous
  Country: US (occurrence: US)
  Receive Date: 20150916
  Receipt Date: 20150916
  Transmission Date: 20151125
  Serious: No
  Sender: FDA-Public Use
  Company Number: US-ELI_LILLY_AND_COMPANY-US200809003724

PATIENT
  Sex: Female

DRUGS (6)
  1. PREVACID [Concomitant]
     Active Substance: LANSOPRAZOLE
  2. FORTEO [Suspect]
     Active Substance: TERIPARATIDE
     Dates: start: 2006
  3. VITAMIN D [Concomitant]
     Active Substance: CHOLECALCIFEROL
  4. SYSTANE                            /02034401/ [Concomitant]
  5. ATACAND [Concomitant]
     Active Substance: CANDESARTAN CILEXETIL
  6. ALISKIREN [Concomitant]
     Active Substance: ALISKIREN

REACTIONS (7)
  - Asthenia [Recovered/Resolved]
  - Balance disorder [Recovered/Resolved]
  - Eye infection [Not Recovered/Not Resolved]
  - Sensory disturbance [Not Recovered/Not Resolved]
  - Muscle spasms [Recovered/Resolved]
  - Dizziness [Recovered/Resolved]
  - Alopecia [Recovered/Resolved]

NARRATIVE: CASE EVENT DATE: 2008
